FAERS Safety Report 4743664-5 (Version None)
Quarter: 2005Q3

REPORT INFORMATION
  Report Type: 
  Country: None (occurrence: None)
  Receive Date: 20050812
  Receipt Date: 20050713
  Transmission Date: 20060218
  Serious: Yes (Hospitalization)
  Sender: FDA-Public Use
  Company Number: JP-ABBOTT-05P-087-0305907-00

PATIENT
  Sex: Female
  Weight: 31.7 kg

DRUGS (3)
  1. KLARICID [Suspect]
     Indication: PYREXIA
     Route: 048
     Dates: start: 20050702, end: 20050705
  2. KLARICID [Suspect]
     Indication: COUGH
  3. CEFDINIR [Concomitant]
     Indication: PYREXIA
     Route: 048
     Dates: start: 20050705, end: 20050707

REACTIONS (4)
  - HEPATIC FUNCTION ABNORMAL [None]
  - PLATELET COUNT DECREASED [None]
  - PYREXIA [None]
  - WHITE BLOOD CELL COUNT DECREASED [None]
